FAERS Safety Report 15206797 (Version 1)
Quarter: 2018Q3

REPORT INFORMATION
  Report Type: Spontaneous
  Country: US (occurrence: US)
  Receive Date: 20180628
  Receipt Date: 20180628
  Transmission Date: 20181010
  Serious: No
  Sender: FDA-Public Use
  Company Number: None

PATIENT
  Age: 39 Year
  Sex: Female
  Weight: 59.42 kg

DRUGS (4)
  1. METHOTREXATE. [Suspect]
     Active Substance: METHOTREXATE
     Dates: end: 20180610
  2. VINCRISTINE SULFATE. [Suspect]
     Active Substance: VINCRISTINE SULFATE
     Dates: end: 20180508
  3. PREDNISONE. [Suspect]
     Active Substance: PREDNISONE
     Dates: end: 20180512
  4. MERCAPTOPURINE. [Suspect]
     Active Substance: MERCAPTOPURINE
     Dates: end: 20180610

REACTIONS (7)
  - Neutrophil count decreased [None]
  - Dizziness [None]
  - Diarrhoea [None]
  - Haemoglobin decreased [None]
  - Dyspnoea [None]
  - Chest pain [None]
  - Blood bilirubin increased [None]

NARRATIVE: CASE EVENT DATE: 20180610
